FAERS Safety Report 19885063 (Version 1)
Quarter: 2021Q3

REPORT INFORMATION
  Report Type: Spontaneous
  Country: US (occurrence: US)
  Receive Date: 20210924
  Receipt Date: 20210924
  Transmission Date: 20211014
  Serious: Yes (Hospitalization)
  Sender: FDA-Public Use
  Company Number: None

PATIENT
  Age: 53 Year
  Sex: Female

DRUGS (3)
  1. OCTREOTIDE 50MCG/ML SYR [Suspect]
     Active Substance: OCTREOTIDE ACETATE
     Indication: CARCINOID TUMOUR OF THE SMALL BOWEL
     Dosage: ?          OTHER DOSE:1 SYRINGE;?
     Route: 058
     Dates: start: 20191019
  2. VITAMIN D [Concomitant]
     Active Substance: VITAMIN D NOS
  3. PHENOBARB [Concomitant]
     Active Substance: PHENOBARBITAL SODIUM

REACTIONS (1)
  - Cholecystectomy [None]

NARRATIVE: CASE EVENT DATE: 20210804
